FAERS Safety Report 12447090 (Version 1)
Quarter: 2016Q2

REPORT INFORMATION
  Report Type: Spontaneous
  Country: US (occurrence: US)
  Receive Date: 20160608
  Receipt Date: 20160608
  Transmission Date: 20160815
  Serious: No
  Sender: FDA-Public Use
  Company Number: US-TAKEDA-2016TUS009422

PATIENT
  Sex: Male
  Weight: 58.96 kg

DRUGS (4)
  1. ULORIC [Suspect]
     Active Substance: FEBUXOSTAT
     Indication: BLOOD URIC ACID ABNORMAL
     Dosage: 40 MG, QD
     Route: 048
     Dates: start: 201604, end: 201605
  2. ULORIC [Suspect]
     Active Substance: FEBUXOSTAT
     Indication: NEPHROPATHY
     Dosage: UNK, QD
     Route: 048
     Dates: start: 201605
  3. LEXAPRO [Concomitant]
     Active Substance: ESCITALOPRAM OXALATE
     Indication: DEPRESSION
     Dosage: UNK
     Route: 048
     Dates: start: 201604, end: 201605
  4. GABAPENTIN. [Concomitant]
     Active Substance: GABAPENTIN
     Indication: NEUROPATHY PERIPHERAL
     Dosage: 400 MG, TID
     Route: 048
     Dates: start: 201604

REACTIONS (2)
  - Wrong technique in product usage process [Not Recovered/Not Resolved]
  - Neuropathy peripheral [Not Recovered/Not Resolved]
